FAERS Safety Report 5027123-0 (Version None)
Quarter: 2006Q2

REPORT INFORMATION
  Report Type: 
  Country: None (occurrence: None)
  Receive Date: 20060609
  Receipt Date: 20060605
  Transmission Date: 20061013
  Serious: Yes (Other)
  Sender: FDA-Public Use
  Company Number: S06-USA-01437-01

PATIENT
  Age: 50 Year
  Sex: Female

DRUGS (10)
  1. LEXAPRO [Suspect]
     Indication: DEPRESSION
     Dosage: 20 MG QD PO
     Route: 048
     Dates: start: 20040101, end: 20060101
  2. LEXAPRO [Suspect]
     Indication: DYSTONIA
     Dosage: 20 MG QD PO
     Route: 048
     Dates: start: 20040101, end: 20060101
  3. LEXAPRO [Suspect]
     Indication: DEPRESSION
     Dates: start: 20060101, end: 20060101
  4. LEXAPRO [Suspect]
     Indication: DYSTONIA
     Dates: start: 20060101, end: 20060101
  5. TRILEPTAL [Suspect]
     Indication: DEPRESSION
     Dosage: 450 MG QD
     Dates: end: 20060101
  6. TRILEPTAL [Suspect]
     Indication: DYSTONIA
     Dosage: 450 MG QD
     Dates: end: 20060101
  7. FLEXERIL [Suspect]
     Indication: ACCIDENT
     Dates: start: 20051201, end: 20060101
  8. FLEXERIL [Suspect]
     Indication: INJURY
     Dates: start: 20051201, end: 20060101
  9. ULTRACET [Suspect]
     Indication: INJURY
     Dates: end: 20060101
  10. ULTRACET [Suspect]
     Indication: PAIN
     Dates: end: 20060101

REACTIONS (12)
  - ADRENAL DISORDER [None]
  - AMNESIA [None]
  - ARTHRALGIA [None]
  - BLOOD GLUCOSE DECREASED [None]
  - CHEST PAIN [None]
  - DISTURBANCE IN ATTENTION [None]
  - DRUG INTERACTION [None]
  - FATIGUE [None]
  - FEELING COLD [None]
  - INTERVERTEBRAL DISC PROTRUSION [None]
  - LABORATORY TEST ABNORMAL [None]
  - ROAD TRAFFIC ACCIDENT [None]
